FAERS Safety Report 5584155-1 (Version None)
Quarter: 2007Q4

REPORT INFORMATION
  Report Type: 
  Country: None (occurrence: None)
  Receive Date: 20071130
  Receipt Date: 20070122
  Transmission Date: 20080405
  Serious: Yes (Other)
  Sender: FDA-Public Use
  Company Number: WAES 0607USA05714

PATIENT
  Age: 84 Year
  Sex: Female

DRUGS (2)
  1. FOSAMAX [Suspect]
     Dosage: 10 MG/DAILY/PO
     Route: 048
     Dates: start: 19960701, end: 20010101
  2. FOSAMAX [Suspect]
     Dosage: 70 MG/WKY/PO
     Route: 048
     Dates: start: 20010101, end: 20050101

REACTIONS (3)
  - FALL [None]
  - FRACTURE [None]
  - OSTEONECROSIS [None]
